FAERS Safety Report 18338409 (Version 1)
Quarter: 2020Q4

REPORT INFORMATION
  Report Type: Spontaneous
  Country: SE (occurrence: SE)
  Receive Date: 20201002
  Receipt Date: 20201002
  Transmission Date: 20210113
  Serious: Yes (Death)
  Sender: FDA-Public Use
  Company Number: SE-TEVA-2020-SE-1833402

PATIENT
  Age: 69 Year
  Sex: Male

DRUGS (13)
  1. AZATHIOPRINE. [Concomitant]
     Active Substance: AZATHIOPRINE
  2. OMECAT [Concomitant]
     Active Substance: OMEPRAZOLE
  3. URSOFALK [Concomitant]
     Active Substance: URSODIOL
  4. ASACOL [Concomitant]
     Active Substance: MESALAMINE
  5. ATORVASTATIN [Suspect]
     Active Substance: ATORVASTATIN
     Indication: MYOCARDIAL ISCHAEMIA
  6. ADPORT [Concomitant]
     Active Substance: TACROLIMUS
  7. ATORVASTATIN [Suspect]
     Active Substance: ATORVASTATIN
     Indication: HYPERLIPIDAEMIA
     Dosage: 40 MG
     Dates: start: 20200414, end: 20200520
  8. ATORVASTATIN [Suspect]
     Active Substance: ATORVASTATIN
     Indication: CEREBROVASCULAR ACCIDENT
  9. ENALAPRIL [Concomitant]
     Active Substance: ENALAPRIL
  10. CLOPIDOGREL [Concomitant]
     Active Substance: CLOPIDOGREL BISULFATE
  11. BENFEROL [Concomitant]
  12. CEFOTAXIME [Concomitant]
     Active Substance: CEFOTAXIME SODIUM
  13. PREDNISOLONE. [Concomitant]
     Active Substance: PREDNISOLONE

REACTIONS (1)
  - Rhabdomyolysis [Fatal]

NARRATIVE: CASE EVENT DATE: 20200511
